FAERS Safety Report 17417435 (Version 2)
Quarter: 2020Q1

REPORT INFORMATION
  Report Type: Spontaneous
  Country: JP (occurrence: JP)
  Receive Date: 20200214
  Receipt Date: 20200225
  Transmission Date: 20200409
  Serious: Yes (Death, Other)
  Sender: FDA-Public Use
  Company Number: JP-AMGEN-JPNSP2020025840

PATIENT
  Age: 81 Year
  Sex: Male

DRUGS (1)
  1. RANMARK [Suspect]
     Active Substance: DENOSUMAB
     Indication: PROSTATE CANCER
     Dosage: 120 MILLIGRAM, QMO
     Route: 058
     Dates: start: 20140807, end: 20150630

REACTIONS (2)
  - Squamous cell carcinoma [Fatal]
  - Osteonecrosis of jaw [Fatal]

NARRATIVE: CASE EVENT DATE: 20150630
